FAERS Safety Report 7996002-9 (Version None)
Quarter: 2011Q4

REPORT INFORMATION
  Report Type: 
  Country: None (occurrence: None)
  Receive Date: 20111220
  Receipt Date: 20111207
  Transmission Date: 20120403
  Serious: Yes (Other)
  Sender: FDA-Public Use
  Company Number: PHHY2011IE89511

PATIENT
  Sex: Female
  Weight: 73 kg

DRUGS (9)
  1. AMLODIPINE [Concomitant]
     Indication: HYPERTENSION
     Route: 048
  2. CLOPIDOGREL [Concomitant]
     Indication: CAROTIDYNIA
     Dates: start: 20110611, end: 20111114
  3. LANSOPRAZOLE [Concomitant]
     Indication: GASTRIC DISORDER
     Route: 048
     Dates: start: 20110126, end: 20111114
  4. IBANDRONATE SODIUM [Concomitant]
     Indication: OSTEOPOROSIS
     Dosage: 1 DF, QMO
     Dates: start: 20070516, end: 20110915
  5. NEBIVOLOL HCL [Concomitant]
     Indication: HYPERTENSION
     Route: 048
     Dates: start: 20070131, end: 20111114
  6. ATORVASTATIN [Concomitant]
     Indication: BLOOD CHOLESTEROL INCREASED
     Dates: start: 20100910, end: 20111114
  7. RASILEZ [Suspect]
     Indication: HYPERTENSION
     Dosage: 150 MG, UNK
     Dates: start: 20110411, end: 20110515
  8. RASILEZ [Suspect]
     Dosage: 300 MG, UNK
     Dates: start: 20110518, end: 20110920
  9. TERIPARATIDE [Concomitant]

REACTIONS (1)
  - HYPONATRAEMIA [None]
